FAERS Safety Report 14480979 (Version 1)
Quarter: 2018Q1

REPORT INFORMATION
  Report Type: Spontaneous
  Country: US (occurrence: US)
  Receive Date: 20180201
  Receipt Date: 20180201
  Transmission Date: 20180509
  Serious: Yes (Death, Hospitalization)
  Sender: FDA-Public Use
  Company Number: None

PATIENT
  Age: 41 Year
  Sex: Female

DRUGS (1)
  1. HYDROCODONE-APAP [Suspect]
     Active Substance: ACETAMINOPHEN\HYDROCODONE

REACTIONS (4)
  - Mental status changes [None]
  - Shock [None]
  - Loss of consciousness [None]
  - Overdose [None]
